FAERS Safety Report 8179228-3 (Version None)
Quarter: 2012Q1

REPORT INFORMATION
  Report Type: 
  Country: None (occurrence: None)
  Receive Date: 20120302
  Receipt Date: 20120222
  Transmission Date: 20120608
  Serious: Yes (Life-Threatening, Hospitalization)
  Sender: FDA-Public Use
  Company Number: US-BAYER-2011-032096

PATIENT
  Age: 39 Year
  Sex: Female
  Weight: 89.796 kg

DRUGS (10)
  1. FIORICET [Concomitant]
     Dosage: UNK
     Route: 048
  2. ANUCORT-HC [Concomitant]
     Dosage: UNK
     Route: 054
  3. YASMIN [Suspect]
     Indication: PREMENSTRUAL SYNDROME
  4. VICODIN [Concomitant]
     Dosage: UNK
     Route: 048
  5. ACETAMINOPHEN [Concomitant]
     Dosage: UNK
     Route: 048
  6. YASMIN [Suspect]
     Indication: CONTRACEPTION
     Dosage: UNK
     Dates: start: 20070501, end: 20071201
  7. ZOVIRAX [Concomitant]
     Dosage: UNK
     Route: 061
  8. PSEUDOEPHEDRINE HCL [Concomitant]
     Route: 048
  9. PROTONIX [Concomitant]
     Dosage: UNK
     Route: 048
  10. YASMIN [Suspect]
     Indication: ACNE

REACTIONS (3)
  - INJURY [None]
  - THROMBOSIS [None]
  - MENTAL DISORDER [None]
